FAERS Safety Report 6148280-9 (Version None)
Quarter: 2009Q2

REPORT INFORMATION
  Report Type: 
  Country: None (occurrence: None)
  Receive Date: 20090408
  Receipt Date: 20080429
  Transmission Date: 20091009
  Serious: No
  Sender: FDA-Public Use
  Company Number: US-TYCO HEALTHCARE/MALLINCKRODT-T200800752

PATIENT

DRUGS (13)
  1. TOFRANIL-PM [Suspect]
     Indication: DEPRESSION
     Dosage: 75 MG, QD (EVERY PM)
     Route: 048
     Dates: start: 20080201, end: 20080401
  2. VISTARIL                           /00058402/ [Concomitant]
     Indication: ANXIETY
     Dosage: 25 MG, QD (EVERY PM)
     Route: 048
  3. FLONASE [Concomitant]
     Indication: SEASONAL ALLERGY
     Dosage: 2 SPRAYS, QD
     Route: 045
  4. INDERAL                            /00030001/ [Concomitant]
     Indication: MIGRAINE
     Dosage: 10 MG, TID
     Route: 048
  5. INDERAL                            /00030001/ [Concomitant]
     Indication: HEART RATE IRREGULAR
  6. VALIUM [Concomitant]
     Indication: ANXIETY
     Dosage: 9 MG, TID
     Route: 048
  7. IMIPRAMINE [Concomitant]
     Indication: DEPRESSION
     Dosage: 75 MG, QD (Q PM)
     Route: 048
     Dates: end: 20080201
  8. KLONOPIN [Concomitant]
     Indication: PANIC ATTACK
     Dosage: 7.5 MG, HS
     Route: 048
  9. KLONOPIN [Concomitant]
     Indication: SLEEP DISORDER
  10. OSCAL D [Concomitant]
     Indication: CALCIUM DEFICIENCY
     Dosage: ONE, QD
     Route: 048
  11. MILK OF MAGNESIA [Concomitant]
     Indication: LAXATIVE SUPPORTIVE CARE
     Dosage: 1.2 TBSP, QD
     Route: 048
  12. VITAMIN B-12 [Concomitant]
     Indication: HYPOVITAMINOSIS
     Dosage: Q 2 MONTHS
     Route: 030
  13. TYLENOL (CAPLET) [Concomitant]
     Indication: MYALGIA
     Dosage: 1-2 TABS, PRN
     Route: 048

REACTIONS (3)
  - HYPOAESTHESIA ORAL [None]
  - PHARYNGEAL HYPOAESTHESIA [None]
  - THIRST [None]
